FAERS Safety Report 17621086 (Version 1)
Quarter: 2020Q2

REPORT INFORMATION
  Report Type: Spontaneous
  Country: FR (occurrence: FR)
  Receive Date: 20200403
  Receipt Date: 20200403
  Transmission Date: 20200713
  Serious: Yes (Death, Hospitalization)
  Sender: FDA-Public Use
  Company Number: FR-TEVA-2020-FR-1215889

PATIENT
  Age: 64 Year
  Sex: Female

DRUGS (16)
  1. VINCRISTINE (SULFATE DE) [Suspect]
     Active Substance: VINCRISTINE SULFATE
     Indication: BURKITT^S LYMPHOMA
     Dosage: NOT DISCLOSED
     Route: 065
     Dates: start: 20191005
  2. ZOPHREN 4 MG/2 ML, SOLUTION INJECTABLE EN SERINGUE PRE-REMPLIE [Concomitant]
     Dosage: IF NAUSEA AND VOMITING,12 MG
     Route: 042
     Dates: start: 20191122
  3. PANTOPRAZOLE [Concomitant]
     Active Substance: PANTOPRAZOLE
     Dosage: 40 MG
     Route: 042
     Dates: start: 20191122
  4. PRIMPERAN [Concomitant]
     Active Substance: METOCLOPRAMIDE HYDROCHLORIDE
     Dosage: 40 MG
     Route: 042
     Dates: start: 20191122
  5. INSULINE [Concomitant]
     Active Substance: INSULIN NOS
     Route: 065
     Dates: start: 20191122
  6. PREDNISONE. [Suspect]
     Active Substance: PREDNISONE
     Indication: BURKITT^S LYMPHOMA
     Dosage: UNSPECIFIED
     Route: 065
     Dates: start: 20191005
  7. DOXORUBICINE [Suspect]
     Active Substance: DOXORUBICIN
     Indication: BURKITT^S LYMPHOMA
     Dosage: NOT DISCLOSED
     Route: 065
     Dates: start: 20191005
  8. CYCLOPHOSPHAMIDE. [Suspect]
     Active Substance: CYCLOPHOSPHAMIDE
     Indication: BURKITT^S LYMPHOMA
     Dosage: NOT DISCLOSED
     Route: 065
     Dates: start: 20191005
  9. PREGABALINE [Concomitant]
     Active Substance: PREGABALIN
     Dosage: 150 MG
     Route: 048
     Dates: start: 20191122
  10. METHOTREXATE. [Suspect]
     Active Substance: METHOTREXATE
     Indication: BURKITT^S LYMPHOMA
     Dosage: UNSPECIFIED
     Route: 065
     Dates: start: 20191003
  11. ACICLOVIR [Concomitant]
     Active Substance: ACYCLOVIR
     Dosage: 750 MG
     Route: 042
     Dates: start: 20191122
  12. RITUXIMAB ((MAMMIFERE/HAMSTER/CELLULES CHO)) [Suspect]
     Active Substance: RITUXIMAB
     Indication: BURKITT^S LYMPHOMA
     Dosage: NOT SPECIFIED
     Route: 065
     Dates: start: 20191005
  13. MORPHINE [Concomitant]
     Active Substance: MORPHINE
     Dosage: IF NECESSARY,2 MG
     Route: 042
     Dates: start: 20191122
  14. BACTRIM [Concomitant]
     Active Substance: SULFAMETHOXAZOLE\TRIMETHOPRIM
     Dosage: 1 DOSAGE FORMS
     Route: 042
     Dates: start: 20191122
  15. FILGRASTIM ((BACTERIE/ESCHERICHIA COLI)) [Concomitant]
     Active Substance: FILGRASTIM
     Dosage: 1 MG
     Route: 042
     Dates: start: 20191122
  16. ALVITYL, COMPRIME ENROBE [Concomitant]
     Dosage: 1 DOSAGE FORMS
     Route: 048
     Dates: start: 20191122

REACTIONS (2)
  - Bone marrow failure [Fatal]
  - Septic shock [Fatal]

NARRATIVE: CASE EVENT DATE: 20191005
